FAERS Safety Report 5454027-1 (Version None)
Quarter: 2007Q3

REPORT INFORMATION
  Report Type: 
  Country: None (occurrence: None)
  Receive Date: 20070917
  Receipt Date: 20070228
  Transmission Date: 20080115
  Serious: Yes (Hospitalization)
  Sender: FDA-Public Use
  Company Number: US-ASTRAZENECA-2006UW07068

PATIENT
  Age: 512 Month
  Sex: Male
  Weight: 134.1 kg

DRUGS (3)
  1. SEROQUEL [Suspect]
     Indication: MENTAL DISORDER
     Route: 048
     Dates: start: 20020601, end: 20060401
  2. GEODON [Concomitant]
     Dates: start: 20060501
  3. WELLBUTRIN [Concomitant]
     Dosage: 150 MG-300 MG
     Dates: start: 20000101

REACTIONS (1)
  - TYPE 2 DIABETES MELLITUS [None]
